FAERS Safety Report 5882578-4 (Version None)
Quarter: 2008Q3

REPORT INFORMATION
  Report Type: 
  Country: None (occurrence: None)
  Receive Date: 20080913
  Receipt Date: 20080819
  Transmission Date: 20090109
  Serious: No
  Sender: FDA-Public Use
  Company Number: US-ABBOTT-08P-163-0469842-00

PATIENT
  Sex: Female
  Weight: 68.1 kg

DRUGS (11)
  1. HUMIRA [Suspect]
     Indication: PSORIATIC ARTHROPATHY
     Route: 050
     Dates: start: 20060101, end: 20080701
  2. HUMIRA [Suspect]
     Indication: PSORIASIS
  3. CALCIUM D3 [Concomitant]
     Indication: MINERAL SUPPLEMENTATION
     Dosage: 600+200
     Route: 048
  4. FLUTICASONE PROPIONATE [Concomitant]
     Indication: SINUS DISORDER
     Route: 045
  5. PAIN KILLERS [Concomitant]
     Indication: PAIN
     Route: 048
  6. VICODIN [Concomitant]
     Indication: DRUG USE FOR UNKNOWN INDICATION
     Dosage: 5/500 EVERY SIX HOURS
  7. FIORINAL [Concomitant]
     Indication: DRUG USE FOR UNKNOWN INDICATION
     Dosage: 50/325/40 EVERY 4 HRS(MAX 6/DAY)
  8. MSN [Concomitant]
     Indication: DRUG USE FOR UNKNOWN INDICATION
  9. DIAZEPAM [Concomitant]
     Indication: DRUG USE FOR UNKNOWN INDICATION
  10. DIVELLE [Concomitant]
     Indication: HORMONE REPLACEMENT THERAPY
     Dosage: PATCH
     Route: 062
  11. FENOFIBRATE [Concomitant]
     Indication: DRUG USE FOR UNKNOWN INDICATION

REACTIONS (2)
  - SKIN LESION [None]
  - SQUAMOUS CELL CARCINOMA [None]
